FAERS Safety Report 25865690 (Version 1)
Quarter: 2025Q3

REPORT INFORMATION
  Report Type: Spontaneous
  Country: US (occurrence: US)
  Receive Date: 20250930
  Receipt Date: 20250930
  Transmission Date: 20251021
  Serious: No
  Sender: HERON
  Company Number: US-HERON THERAPEUTICS, INC-HRTX-2025-001075

PATIENT
  Age: 14 Year
  Sex: Male

DRUGS (3)
  1. ZYNRELEF [Suspect]
     Active Substance: BUPIVACAINE\MELOXICAM
     Indication: Postoperative analgesia
     Route: 065
     Dates: start: 20250306, end: 20250306
  2. ZYNRELEF [Suspect]
     Active Substance: BUPIVACAINE\MELOXICAM
     Indication: Flatfoot reconstruction
  3. ZYNRELEF [Suspect]
     Active Substance: BUPIVACAINE\MELOXICAM
     Indication: Tenotomy

REACTIONS (4)
  - Incision site pain [Unknown]
  - Incision site swelling [Unknown]
  - Incision site vesicles [Unknown]
  - Product use issue [Unknown]

NARRATIVE: CASE EVENT DATE: 20250306
